FAERS Safety Report 8816606 (Version 3)
Quarter: 2013Q1

REPORT INFORMATION
  Report Type: Spontaneous
  Country: GR (occurrence: None)
  Receive Date: 20120928
  Receipt Date: 20121015
  Transmission Date: 20140127
  Serious: No
  Sender: FDA-Public Use
  Company Number: THQ2012A08365

PATIENT
  Age: 61 Year
  Sex: Female

DRUGS (2)
  1. ACTOS (PIOGLITAZONE HYDROCHLORIDE) [Suspect]
     Indication: TYPE 2 DIABETES MELLITUS
     Route: 048
     Dates: start: 201207
  2. METFORMIN HYDROCHLORIDE W/VILDAGLIPTIN (DRUG USED IN DIABETES) [Concomitant]

REACTIONS (2)
  - Haematocrit decreased [None]
  - Lymphocyte percentage increased [None]
